FAERS Safety Report 20584282 (Version 1)
Quarter: 2022Q1

REPORT INFORMATION
  Report Type: Spontaneous
  Country: IL (occurrence: IL)
  Receive Date: 20220311
  Receipt Date: 20220311
  Transmission Date: 20220424
  Serious: Yes (Hospitalization, Other)
  Sender: FDA-Public Use
  Company Number: IL-BoehringerIngelheim-2022-BI-158632

PATIENT
  Age: 79 Year
  Sex: Male

DRUGS (1)
  1. EMPAGLIFLOZIN\METFORMIN HYDROCHLORIDE [Suspect]
     Active Substance: EMPAGLIFLOZIN\METFORMIN HYDROCHLORIDE
     Indication: Product used for unknown indication
     Dosage: 12.5/1000 MG. MEDICATION STARTED 3-4 MONTHS AGO.
     Dates: start: 2021

REACTIONS (5)
  - Transitional cell carcinoma [Recovering/Resolving]
  - Overdose [Unknown]
  - Burning sensation [Unknown]
  - Urine odour abnormal [Unknown]
  - Haemorrhage urinary tract [Unknown]
